FAERS Safety Report 5742407-6 (Version None)
Quarter: 2008Q2

REPORT INFORMATION
  Report Type: 
  Country: None (occurrence: None)
  Receive Date: 20080519
  Receipt Date: 20080507
  Transmission Date: 20081010
  Serious: Yes (Other)
  Sender: FDA-Public Use
  Company Number: US-JNJFOC-20080503044

PATIENT
  Sex: Female

DRUGS (5)
  1. ASPIRIN [Suspect]
     Indication: ANTICOAGULANT THERAPY
     Dosage: 81-162 MG A DAY
     Route: 048
  2. LOVENOX [Suspect]
     Route: 058
  3. LOVENOX [Suspect]
     Indication: ANTICOAGULANT THERAPY
     Route: 058
  4. VITAMIN AND MINERAL PRENATAL SUPPLEMENT W/ FOLIC ACID CAP [Concomitant]
  5. FERROUS SULFATE TAB [Concomitant]
     Indication: ANAEMIA

REACTIONS (2)
  - ABORTION SPONTANEOUS [None]
  - DRUG EXPOSURE DURING PREGNANCY [None]
